FAERS Safety Report 21949029 (Version 2)
Quarter: 2023Q2

REPORT INFORMATION
  Report Type: Other
  Country: FR (occurrence: FR)
  Receive Date: 20230203
  Receipt Date: 20230410
  Transmission Date: 20230722
  Serious: No
  Sender: FDA-Public Use
  Company Number: FR-CELLTRION INC.-2023FR002080

PATIENT

DRUGS (1)
  1. RITUXIMAB [Suspect]
     Active Substance: RITUXIMAB
     Indication: Secondary progressive multiple sclerosis
     Dosage: UNK
     Dates: start: 20180106

REACTIONS (2)
  - No adverse event [Unknown]
  - Off label use [Unknown]
